FAERS Safety Report 8587403-9 (Version None)
Quarter: 2012Q3

REPORT INFORMATION
  Report Type: 
  Country: None (occurrence: None)
  Receive Date: 20120810
  Receipt Date: 20120508
  Transmission Date: 20120928
  Serious: No
  Sender: FDA-Public Use
  Company Number: US-ASTRAZENECA-2011SE69253

PATIENT
  Age: 72 Year
  Sex: Female

DRUGS (4)
  1. CORTISONE ACETATE [Concomitant]
  2. NAPROSYN [Concomitant]
  3. ARIMIDEX [Suspect]
     Route: 048
  4. METFORMIN HYDROCHLORIDE [Concomitant]

REACTIONS (3)
  - NASOPHARYNGITIS [None]
  - ARTHRITIS [None]
  - SINUS DISORDER [None]
